FAERS Safety Report 8615768-8 (Version None)
Quarter: 2012Q3

REPORT INFORMATION
  Report Type: 
  Country: None (occurrence: None)
  Receive Date: 20120823
  Receipt Date: 20120817
  Transmission Date: 20120928
  Serious: Yes (Hospitalization)
  Sender: FDA-Public Use
  Company Number: BR-ROCHE-1103918

PATIENT
  Sex: Female
  Weight: 100 kg

DRUGS (16)
  1. TYLENOL [Concomitant]
     Indication: PREMEDICATION
  2. MABTHERA [Suspect]
     Dates: start: 20120508
  3. METFORMIN HCL [Concomitant]
  4. ACETYLSALICYLIC ACID SRT [Concomitant]
  5. AMLODIPINE [Concomitant]
  6. CORTICOSTEROID (UNK INGREDIENTS) [Concomitant]
     Indication: PREMEDICATION
  7. MABTHERA [Suspect]
     Dates: start: 20110315
  8. MABTHERA [Suspect]
     Dates: start: 20120522
  9. DIOVAN [Concomitant]
  10. VALTREX [Concomitant]
  11. MABTHERA [Suspect]
     Indication: DERMATOMYOSITIS
     Dates: start: 20110225
  12. MABTHERA [Suspect]
     Dates: start: 20110815
  13. MABTHERA [Suspect]
     Dates: start: 20110801
  14. LEVOFLOXACIN [Concomitant]
  15. OMEPRAZOLE [Concomitant]
  16. ATENOLOL [Concomitant]

REACTIONS (6)
  - URTICARIA [None]
  - CARDIAC DISORDER [None]
  - BLOOD TRIGLYCERIDES INCREASED [None]
  - NERVOUSNESS [None]
  - WEIGHT FLUCTUATION [None]
  - HEADACHE [None]
